FAERS Safety Report 7736969-7 (Version None)
Quarter: 2011Q3

REPORT INFORMATION
  Report Type: 
  Country: None (occurrence: None)
  Receive Date: 20110908
  Receipt Date: 20110223
  Transmission Date: 20111222
  Serious: No
  Sender: FDA-Public Use
  Company Number: US-BAYER-2011-017842

PATIENT
  Age: 28 Year
  Sex: Female

DRUGS (2)
  1. DIOSMIN [Concomitant]
     Indication: CARDIOVASCULAR DISORDER
  2. MIRENA [Suspect]
     Indication: MENORRHAGIA
     Dosage: 20 ?G/D, CONT
     Route: 015
     Dates: start: 20110101

REACTIONS (2)
  - JOINT SWELLING [None]
  - SKIN DISCOLOURATION [None]
